FAERS Safety Report 5478183-4 (Version None)
Quarter: 2007Q4

REPORT INFORMATION
  Report Type: 
  Country: None (occurrence: None)
  Receive Date: 20071005
  Receipt Date: 20070320
  Transmission Date: 20080405
  Serious: No
  Sender: FDA-Public Use
  Company Number: US-BRISTOL-MYERS SQUIBB COMPANY-13720164

PATIENT
  Age: 68 Year
  Sex: Female
  Weight: 113 kg

DRUGS (4)
  1. AVAPRO [Suspect]
  2. AVALIDE TABS 300 MG/25 MG [Suspect]
  3. TENORMIN [Concomitant]
  4. ASPIRIN [Concomitant]

REACTIONS (7)
  - DRY EYE [None]
  - EYE PRURITUS [None]
  - EYE SWELLING [None]
  - LACRIMATION INCREASED [None]
  - OCULAR HYPERAEMIA [None]
  - PRURITUS [None]
  - RASH [None]
